FAERS Safety Report 5715640-7 (Version None)
Quarter: 2008Q2

REPORT INFORMATION
  Report Type: 
  Country: None (occurrence: None)
  Receive Date: 20080424
  Receipt Date: 20080312
  Transmission Date: 20081010
  Serious: No
  Sender: FDA-Public Use
  Company Number: US-BAYER-200817120NA

PATIENT
  Age: 28 Year
  Sex: Female

DRUGS (3)
  1. MIRENA [Suspect]
     Indication: CONTRACEPTION
     Route: 015
     Dates: start: 20080201, end: 20080308
  2. ANTIBIOTIC (NOS) [Concomitant]
     Indication: URINARY TRACT INFECTION
  3. CIPRO [Concomitant]
     Indication: URINARY TRACT INFECTION
     Route: 048
     Dates: start: 20080201

REACTIONS (1)
  - BACK PAIN [None]
